FAERS Safety Report 16816358 (Version 1)
Quarter: 2019Q4

REPORT INFORMATION
  Report Type: Spontaneous
  Country: US (occurrence: US)
  Receive Date: 20190917
  Receipt Date: 20190917
  Transmission Date: 20200122
  Serious: Yes (Hospitalization)
  Sender: FDA-Public Use
  Company Number: None

PATIENT
  Age: 56 Year
  Sex: Female

DRUGS (9)
  1. DEXAMETHASONE TAB 4 MG [Concomitant]
  2. TEMOZOLOMIDE. [Suspect]
     Active Substance: TEMOZOLOMIDE
     Indication: BRAIN NEOPLASM MALIGNANT
     Dosage: ?          OTHER FREQUENCY:EVERY HOUR;?
     Route: 048
     Dates: start: 20190730
  3. ONDANSETRON TAB 8 MG [Concomitant]
  4. GABAPENTIN CAP 300 MG [Concomitant]
  5. SMZ/TMP DS TAB 800-160 [Concomitant]
     Active Substance: SULFAMETHOXAZOLE\TRIMETHOPRIM
  6. VALACYCLOVIR TAB 1 GM [Concomitant]
     Active Substance: VALACYCLOVIR HYDROCHLORIDE
  7. DICYCLOMINE CAP 10 MG [Concomitant]
  8. CREON CAP 36000 UNIT [Concomitant]
  9. SERTRALINE TAB 100 MG [Concomitant]

REACTIONS (2)
  - Blood lactic acid increased [None]
  - Sepsis [None]
